FAERS Safety Report 6453732-8 (Version None)
Quarter: 2009Q4

REPORT INFORMATION
  Report Type: 
  Country: None (occurrence: None)
  Receive Date: 20091124
  Receipt Date: 20090821
  Transmission Date: 20100525
  Serious: No
  Sender: FDA-Public Use
  Company Number: US-BRISTOL-MYERS SQUIBB COMPANY-14750640

PATIENT
  Sex: Female

DRUGS (2)
  1. ONGLYZA [Suspect]
     Indication: INSULIN RESISTANCE
  2. METFORMIN HCL [Suspect]
     Indication: INSULIN RESISTANCE

REACTIONS (1)
  - WEIGHT INCREASED [None]
